FAERS Safety Report 9543398 (Version 1)
Quarter: 2013Q3

REPORT INFORMATION
  Report Type: Spontaneous
  Country: US (occurrence: US)
  Receive Date: 20130923
  Receipt Date: 20130923
  Transmission Date: 20140515
  Serious: Yes (Other)
  Sender: FDA-Public Use
  Company Number: US-PFIZER INC-2013271719

PATIENT
  Age: 45 Year
  Sex: Male
  Weight: 68 kg

DRUGS (10)
  1. OXYCODONE HYDROCHLORIDE [Suspect]
     Indication: INTERVERTEBRAL DISC PROTRUSION
     Dosage: UNK, 3X/DAY
     Dates: start: 2008
  2. OXYCODONE HYDROCHLORIDE [Suspect]
     Indication: SPINAL FUSION SURGERY
     Dosage: 15 MG, 3X/DAY
     Dates: start: 2013
  3. OXYCODONE HYDROCHLORIDE [Suspect]
     Indication: SHOULDER OPERATION
  4. OXYCODONE HYDROCHLORIDE [Suspect]
     Indication: MENISCUS OPERATION
  5. OXYCONTIN [Suspect]
     Indication: INTERVERTEBRAL DISC PROTRUSION
     Dosage: UNK, 3X/DAY
     Dates: start: 2008
  6. OXYCONTIN [Suspect]
     Indication: SPINAL FUSION SURGERY
     Dosage: 20 MG, 3X/DAY
     Dates: start: 2013
  7. OXYCONTIN [Suspect]
     Indication: SHOULDER OPERATION
  8. OXYCONTIN [Suspect]
     Indication: MENISCUS OPERATION
  9. OMEPRAZOLE [Concomitant]
     Indication: DIVERTICULITIS
     Dosage: UNK
  10. OMEPRAZOLE [Concomitant]
     Indication: GASTRIC HAEMORRHAGE

REACTIONS (3)
  - Intentional drug misuse [Unknown]
  - Cerebrovascular accident [Unknown]
  - Myocardial infarction [Unknown]
